FAERS Safety Report 4841807-6 (Version None)
Quarter: 2005Q4

REPORT INFORMATION
  Report Type: 
  Country: None (occurrence: None)
  Receive Date: 20051125
  Receipt Date: 20051107
  Transmission Date: 20060501
  Serious: Yes (Death)
  Sender: FDA-Public Use
  Company Number: 2005-DE-04716GD

PATIENT

DRUGS (1)
  1. MORPHINE [Suspect]
     Dosage: PO
     Route: 048

REACTIONS (1)
  - DEATH [None]
